FAERS Safety Report 25763863 (Version 1)
Quarter: 2025Q3

REPORT INFORMATION
  Report Type: Spontaneous
  Country: US (occurrence: US)
  Receive Date: 20250905
  Receipt Date: 20250905
  Transmission Date: 20251021
  Serious: No
  Sender: DOMPE FARMACEUTICI
  Company Number: US-FARMAPROD-202412-4113

PATIENT
  Sex: Male
  Weight: 87.63 kg

DRUGS (13)
  1. OXERVATE [Suspect]
     Active Substance: CENEGERMIN-BKBJ
     Indication: Neurotrophic keratopathy
     Route: 047
     Dates: start: 20241121
  2. OXERVATE [Suspect]
     Active Substance: CENEGERMIN-BKBJ
  3. MULTIVITAMIN 50 PLUS [Concomitant]
  4. PREDNISOLONE-BROMFENAC [Concomitant]
  5. ZIRGAN [Concomitant]
     Active Substance: GANCICLOVIR
  6. OFLOXACIN [Concomitant]
     Active Substance: OFLOXACIN
  7. ERYTHROMYCIN [Concomitant]
     Active Substance: ERYTHROMYCIN
  8. PANTOPRAZOLE SODIUM [Concomitant]
     Active Substance: PANTOPRAZOLE SODIUM
  9. HYDROCHLOROTHIAZIDE\LOSARTAN [Concomitant]
     Active Substance: HYDROCHLOROTHIAZIDE\LOSARTAN
  10. ATORVASTATIN CALCIUM [Concomitant]
     Active Substance: ATORVASTATIN CALCIUM
  11. VALACYCLOVIR [Concomitant]
     Active Substance: VALACYCLOVIR HYDROCHLORIDE
  12. OPTASE [Concomitant]
  13. OIL OF OREGANO [Concomitant]

REACTIONS (6)
  - Photophobia [Not Recovered/Not Resolved]
  - Photopsia [Unknown]
  - Eye irritation [Not Recovered/Not Resolved]
  - Eye pain [Not Recovered/Not Resolved]
  - Ocular discomfort [Not Recovered/Not Resolved]
  - Foreign body sensation in eyes [Not Recovered/Not Resolved]
